FAERS Safety Report 24103751 (Version 3)
Quarter: 2024Q3

REPORT INFORMATION
  Report Type: Report from Study
  Country: US (occurrence: None)
  Receive Date: 20240717
  Receipt Date: 20240903
  Transmission Date: 20241017
  Serious: Yes (Other)
  Sender: ASTRAZENECA
  Company Number: 2019SF15465

PATIENT
  Age: 69 Year
  Sex: Male
  Weight: 79.4 kg

DRUGS (10)
  1. TUDORZA PRESSAIR [Suspect]
     Active Substance: ACLIDINIUM BROMIDE
     Dosage: 1 PUFF 2 TIMES A DAY
     Route: 055
  2. DALIRESP [Suspect]
     Active Substance: ROFLUMILAST
     Indication: Chronic obstructive pulmonary disease
     Route: 048
     Dates: start: 2014, end: 201901
  3. DALIRESP [Suspect]
     Active Substance: ROFLUMILAST
     Indication: Bronchitis chronic
     Route: 048
     Dates: start: 2014, end: 201901
  4. DALIRESP [Suspect]
     Active Substance: ROFLUMILAST
     Indication: Emphysema
     Route: 048
     Dates: start: 2014, end: 201901
  5. DALIRESP [Suspect]
     Active Substance: ROFLUMILAST
     Indication: Chronic obstructive pulmonary disease
     Route: 048
     Dates: start: 2014, end: 201901
  6. DALIRESP [Suspect]
     Active Substance: ROFLUMILAST
     Indication: Bronchitis chronic
     Route: 048
     Dates: start: 2014, end: 201901
  7. DALIRESP [Suspect]
     Active Substance: ROFLUMILAST
     Indication: Emphysema
     Route: 048
     Dates: start: 2014, end: 201901
  8. DALIRESP [Suspect]
     Active Substance: ROFLUMILAST
     Indication: Chronic obstructive pulmonary disease
     Route: 048
     Dates: start: 2014, end: 201901
  9. DALIRESP [Suspect]
     Active Substance: ROFLUMILAST
     Indication: Bronchitis chronic
     Route: 048
     Dates: start: 2014, end: 201901
  10. DALIRESP [Suspect]
     Active Substance: ROFLUMILAST
     Indication: Emphysema
     Route: 048
     Dates: start: 2014, end: 201901

REACTIONS (9)
  - Prostate cancer [Recovering/Resolving]
  - Dry mouth [Unknown]
  - Dyspnoea [Unknown]
  - Lung disorder [Unknown]
  - Condition aggravated [Unknown]
  - Body height decreased [Unknown]
  - Hypoacusis [Unknown]
  - Product dose omission issue [Unknown]
  - Product use issue [Unknown]

NARRATIVE: CASE EVENT DATE: 20190101
